FAERS Safety Report 9881217 (Version 1)
Quarter: 2014Q1

REPORT INFORMATION
  Report Type: Spontaneous
  Country: AR (occurrence: AR)
  Receive Date: 20140207
  Receipt Date: 20140207
  Transmission Date: 20141002
  Serious: Yes (Other)
  Sender: FDA-Public Use
  Company Number: PHHY2014AR013292

PATIENT
  Sex: Female

DRUGS (10)
  1. CICLOSPORIN [Suspect]
     Indication: HEART TRANSPLANT
     Dosage: 40 MG, PER DAY
  2. CICLOSPORIN [Suspect]
     Dosage: 3.5 MG/KG, PER DAY
  3. CICLOSPORIN [Suspect]
     Dosage: 7.2 MG/KG, PER DAY
  4. PREDNISONE [Suspect]
     Indication: HEART TRANSPLANT
     Dosage: 16 MG, PER DAY
  5. FUROSEMIDE [Suspect]
     Indication: HYPERTENSION
     Dosage: 40 MG, PER DAY
  6. FUROSEMIDE [Suspect]
     Dosage: 80 MG, PER DAY
  7. OXYTOCIN [Suspect]
     Route: 042
  8. NIFEDIPINE [Suspect]
     Indication: HYPERTENSION
     Dosage: 5 MG, UNK
     Route: 060
  9. PRAZOSIN [Suspect]
     Indication: HYPERTENSION
     Dosage: 1.5 MG, PER DAY
  10. PRAZOSIN [Suspect]
     Dosage: 2 MG, PER DAY

REACTIONS (7)
  - Hypertension [Recovering/Resolving]
  - Heart rate increased [Unknown]
  - Premature labour [Unknown]
  - Immunosuppressant drug level increased [Unknown]
  - Blood creatinine increased [Recovered/Resolved]
  - Premature rupture of membranes [Unknown]
  - Maternal exposure during pregnancy [Unknown]
